FAERS Safety Report 10731952 (Version 1)
Quarter: 2015Q1

REPORT INFORMATION
  Report Type: Spontaneous
  Country: US (occurrence: None)
  Receive Date: 20150120
  Receipt Date: 20150120
  Transmission Date: 20150721
  Serious: Yes (Death)
  Sender: FDA-Public Use
  Company Number: 2015010114

PATIENT
  Age: 20 Year
  Sex: Male

DRUGS (4)
  1. LAMOTRIGINE (LAMOTRIGINE) [Suspect]
     Active Substance: LAMOTRIGINE
  2. CARISOPRODOL (CARISOPRODOL) [Suspect]
     Active Substance: CARISOPRODOL
  3. ALPRAZOLAM (ALPRAZOLAM) [Suspect]
     Active Substance: ALPRAZOLAM
  4. HYDROCODONE W/ACETAMINOPHEN (HYDROCODONE, ACETAMINOPHEN) [Suspect]
     Active Substance: ACETAMINOPHEN\HYDROCODONE BITARTRATE

REACTIONS (2)
  - Respiratory arrest [None]
  - Cardiac arrest [None]

NARRATIVE: CASE EVENT DATE: 2013
